FAERS Safety Report 14120832 (Version 1)
Quarter: 2017Q4

REPORT INFORMATION
  Report Type: Spontaneous
  Country: LB (occurrence: LB)
  Receive Date: 20171024
  Receipt Date: 20171024
  Transmission Date: 20180321
  Serious: Yes (Other)
  Sender: FDA-Public Use
  Company Number: LB-ASTRAZENECA-2017SF06405

PATIENT
  Age: 21601 Day
  Sex: Female
  Weight: 76 kg

DRUGS (1)
  1. BRILINTA [Suspect]
     Active Substance: TICAGRELOR
     Indication: ANGINA UNSTABLE
     Route: 048
     Dates: start: 20170530, end: 20171016

REACTIONS (1)
  - Arterial rupture [Unknown]

NARRATIVE: CASE EVENT DATE: 20171015
